FAERS Safety Report 7275859-3 (Version None)
Quarter: 2011Q1

REPORT INFORMATION
  Report Type: 
  Country: None (occurrence: None)
  Receive Date: 20110204
  Receipt Date: 20110127
  Transmission Date: 20110831
  Serious: Yes (Other)
  Sender: FDA-Public Use
  Company Number: CN-JNJFOC-20110200019

PATIENT
  Age: 26 Year
  Sex: Female

DRUGS (4)
  1. VALPROATE SODIUM [Concomitant]
     Indication: PRODUCT USED FOR UNKNOWN INDICATION
     Dosage: ONE AND HALF TABLETS THREE TIMES A DAY
     Route: 048
  2. NITRAZEPAM [Concomitant]
     Indication: PRODUCT USED FOR UNKNOWN INDICATION
     Dosage: ONE TABLET TWICE A DAY
     Route: 048
  3. TOPAMAX [Suspect]
     Indication: EPILEPSY
     Route: 048
  4. TOPAMAX [Suspect]
     Dosage: 25 MG ONCE A DAY OR TWICE A DAY
     Route: 048

REACTIONS (3)
  - FOLLICULITIS [None]
  - THROMBOSIS [None]
  - HAEMATURIA [None]
